FAERS Safety Report 23426607 (Version 1)
Quarter: 2024Q1

REPORT INFORMATION
  Report Type: Spontaneous
  Country: US (occurrence: US)
  Receive Date: 20240122
  Receipt Date: 20240122
  Transmission Date: 20240410
  Serious: Yes (Death, Other)
  Sender: FDA-Public Use
  Company Number: US-CELLTRION INC.-2024US001096

PATIENT

DRUGS (5)
  1. RITUXIMAB [Suspect]
     Active Substance: RITUXIMAB
     Indication: Aplasia pure red cell
     Dosage: 540 MG/M2
  2. RITUXIMAB [Suspect]
     Active Substance: RITUXIMAB
     Indication: Chronic lymphocytic leukaemia
  3. IRON [Concomitant]
     Active Substance: IRON
     Indication: Aplasia pure red cell
     Dosage: 200 MG, DAILY
     Route: 042
  4. ERYTHROPOIETIN [Concomitant]
     Active Substance: ERYTHROPOIETIN
     Indication: Aplasia pure red cell
     Dosage: 40,000 UNIT TWICE DAILY
  5. PREDNISONE [Concomitant]
     Active Substance: PREDNISONE
     Indication: Prophylaxis
     Dosage: 1 MG/KG, DAILY

REACTIONS (3)
  - Cardiac arrest [Fatal]
  - Vomiting [Fatal]
  - Drug ineffective for unapproved indication [Unknown]
